FAERS Safety Report 15436509 (Version 1)
Quarter: 2018Q3

REPORT INFORMATION
  Report Type: Spontaneous
  Country: GB (occurrence: GB)
  Receive Date: 20180927
  Receipt Date: 20180927
  Transmission Date: 20181010
  Serious: Yes (Hospitalization)
  Sender: FDA-Public Use
  Company Number: GB-MYLANLABS-2018M1069869

PATIENT
  Age: 56 Year
  Sex: Female

DRUGS (2)
  1. LEVOBUPIVACAINE [Concomitant]
     Active Substance: LEVOBUPIVACAINE
     Indication: TRIGGER FINGER
     Route: 065
  2. TRIAMCINOLONE [Suspect]
     Active Substance: TRIAMCINOLONE
     Indication: TRIGGER FINGER
     Route: 065

REACTIONS (3)
  - Staphylococcal abscess [Recovering/Resolving]
  - Infective tenosynovitis [Recovering/Resolving]
  - Abscess limb [Recovering/Resolving]
